FAERS Safety Report 13992100 (Version 1)
Quarter: 2017Q3

REPORT INFORMATION
  Report Type: Spontaneous
  Country: US (occurrence: US)
  Receive Date: 20170920
  Receipt Date: 20170920
  Transmission Date: 20171128
  Serious: No
  Sender: FDA-Public Use
  Company Number: US-JNJFOC-20170722819

PATIENT
  Age: 51 Year
  Sex: Female

DRUGS (2)
  1. TOPAMAX [Suspect]
     Active Substance: TOPIRAMATE
     Indication: ELECTROENCEPHALOGRAM ABNORMAL
     Route: 048
     Dates: start: 2008
  2. TOPAMAX [Suspect]
     Active Substance: TOPIRAMATE
     Indication: SYNCOPE
     Route: 048
     Dates: start: 2008

REACTIONS (4)
  - Tremor [Unknown]
  - Salivary hypersecretion [Unknown]
  - Somnolence [Unknown]
  - Hyperhidrosis [Unknown]

NARRATIVE: CASE EVENT DATE: 200809
